FAERS Safety Report 13916270 (Version 1)
Quarter: 2017Q3

REPORT INFORMATION
  Report Type: Spontaneous
  Country: US (occurrence: US)
  Receive Date: 20170829
  Receipt Date: 20170829
  Transmission Date: 20171127
  Serious: No
  Sender: FDA-Public Use
  Company Number: US-ENDO PHARMACEUTICALS INC-2017-000806

PATIENT
  Sex: Male
  Weight: 63.05 kg

DRUGS (5)
  1. TRAMADOL. [Concomitant]
     Active Substance: TRAMADOL
     Indication: PRODUCT USED FOR UNKNOWN INDICATION
  2. LYRICA [Concomitant]
     Active Substance: PREGABALIN
     Indication: NEUROPATHY PERIPHERAL
  3. GABAPENTIN. [Concomitant]
     Active Substance: GABAPENTIN
     Indication: NEUROPATHY PERIPHERAL
  4. PREDNISONE TABLETS [Suspect]
     Active Substance: PREDNISONE
     Indication: GRANULOMATOSIS WITH POLYANGIITIS
     Dosage: 50 MG, OD
     Route: 065
  5. PREDNISONE TABLETS [Suspect]
     Active Substance: PREDNISONE
     Dosage: 5 MG, OD
     Route: 065

REACTIONS (3)
  - Off label use [Unknown]
  - Chronic fatigue syndrome [Unknown]
  - Adrenal disorder [Unknown]
